FAERS Safety Report 7754789-4 (Version None)
Quarter: 2011Q3

REPORT INFORMATION
  Report Type: 
  Country: None (occurrence: None)
  Receive Date: 20110916
  Receipt Date: 20110909
  Transmission Date: 20111222
  Serious: Yes (Life-Threatening)
  Sender: FDA-Public Use
  Company Number: AU-BIOGENIDEC-2011BI034820

PATIENT
  Age: 38 Year
  Sex: Male

DRUGS (1)
  1. TYSABRI [Suspect]
     Indication: MULTIPLE SCLEROSIS
     Route: 042
     Dates: start: 20110412, end: 20110607

REACTIONS (4)
  - FEELING HOT [None]
  - THROAT TIGHTNESS [None]
  - CHEST DISCOMFORT [None]
  - DYSPNOEA [None]
